FAERS Safety Report 4569327-7 (Version None)
Quarter: 2005Q1

REPORT INFORMATION
  Report Type: 
  Country: None (occurrence: None)
  Receive Date: 20050203
  Receipt Date: 20031219
  Transmission Date: 20050727
  Serious: Yes (Hospitalization, Other)
  Sender: FDA-Public Use
  Company Number: US-GLAXOSMITHKLINE-A0494849A

PATIENT
  Age: 31 Year
  Sex: Female

DRUGS (3)
  1. PAXIL [Suspect]
     Indication: ANXIETY
     Route: 048
     Dates: start: 20020101, end: 20020901
  2. XANAX [Concomitant]
     Indication: ANXIETY
     Route: 048
     Dates: start: 20020301
  3. KLONOPIN [Concomitant]
     Indication: ANXIETY
     Route: 048
     Dates: start: 20020101, end: 20020101

REACTIONS (12)
  - BINGE EATING [None]
  - DEPRESSED MOOD [None]
  - DISTURBANCE IN ATTENTION [None]
  - DIZZINESS [None]
  - DRUG WITHDRAWAL SYNDROME [None]
  - FEELING OF DESPAIR [None]
  - INTENTIONAL SELF-INJURY [None]
  - MOOD SWINGS [None]
  - NIGHTMARE [None]
  - SLEEP DISORDER [None]
  - SUICIDAL IDEATION [None]
  - VERTIGO [None]
